FAERS Safety Report 24243012 (Version 1)
Quarter: 2024Q3

REPORT INFORMATION
  Report Type: Spontaneous
  Country: IT (occurrence: IT)
  Receive Date: 20240823
  Receipt Date: 20240823
  Transmission Date: 20241016
  Serious: Yes (Other)
  Sender: RANBAXY
  Company Number: IT-EMA-DD-20240604-7483181-071109

PATIENT
  Age: 38 Year
  Sex: Male

DRUGS (3)
  1. LENALIDOMIDE [Suspect]
     Active Substance: LENALIDOMIDE
     Indication: Monoclonal gammopathy
     Dosage: UNK, 4-WEEKCYCLE REGIMEN
     Route: 065
  2. DARATUMUMAB [Suspect]
     Active Substance: DARATUMUMAB
     Indication: C3 glomerulopathy
     Dosage: UNK, D-RD, 4-WEEKCYCLE REGIMEN
     Route: 065
  3. DEXAMETHASONE [Suspect]
     Active Substance: DEXAMETHASONE
     Indication: C3 glomerulopathy
     Dosage: UNK, 4-WEEKCYCLE REGIMEN
     Route: 065

REACTIONS (2)
  - Pneumonia [Unknown]
  - Product use in unapproved indication [Unknown]

NARRATIVE: CASE EVENT DATE: 20221101
